FAERS Safety Report 4742919-8 (Version None)
Quarter: 2005Q3

REPORT INFORMATION
  Report Type: 
  Country: None (occurrence: None)
  Receive Date: 20050811
  Receipt Date: 20050801
  Transmission Date: 20060218
  Serious: Yes (Other)
  Sender: FDA-Public Use
  Company Number: PHBS2005JP11096

PATIENT
  Age: 29 Year
  Sex: Male

DRUGS (1)
  1. MIKELAN (NVO) [Suspect]
     Indication: OCULAR HYPERTENSION
     Dosage: 4 DROPS/DAY

REACTIONS (3)
  - BRADYCARDIA [None]
  - HYPOTENSION [None]
  - PROCEDURAL COMPLICATION [None]
